FAERS Safety Report 11037601 (Version 1)
Quarter: 2015Q2

REPORT INFORMATION
  Report Type: Spontaneous
  Country: US (occurrence: None)
  Receive Date: 20150415
  Receipt Date: 20150415
  Transmission Date: 20150821
  Serious: Yes (Hospitalization)
  Sender: FDA-Public Use
  Company Number: None

PATIENT
  Age: 56 Year
  Sex: Female
  Weight: 88 kg

DRUGS (3)
  1. MIRALAX [Suspect]
     Active Substance: POLYETHYLENE GLYCOL 3350
     Indication: COLONOSCOPY
     Dosage: 1 SCOOP WAS TO TAKE 8 DOSE
     Route: 048
     Dates: start: 20150408, end: 20150408
  2. ZANTAC [Concomitant]
     Active Substance: RANITIDINE HYDROCHLORIDE
  3. CALCIUM/MAG SUPPLEMENT [Concomitant]

REACTIONS (7)
  - Feeling abnormal [None]
  - Swollen tongue [None]
  - Glossodynia [None]
  - Blood pressure increased [None]
  - Heart rate increased [None]
  - Supraventricular tachycardia [None]
  - Tongue disorder [None]

NARRATIVE: CASE EVENT DATE: 20150408
